FAERS Safety Report 7411687-3 (Version None)
Quarter: 2011Q2

REPORT INFORMATION
  Report Type: 
  Country: None (occurrence: None)
  Receive Date: 20110413
  Receipt Date: 20101217
  Transmission Date: 20111010
  Serious: No
  Sender: FDA-Public Use
  Company Number: US-BRISTOL-MYERS SQUIBB COMPANY-15373483

PATIENT
  Age: 70 Year
  Sex: Female

DRUGS (9)
  1. LEVOTHYROXINE [Concomitant]
  2. METOPROLOL TARTRATE [Concomitant]
  3. SIMVASTATIN [Concomitant]
  4. LOVAZA [Concomitant]
  5. FLECAINIDE ACETATE [Concomitant]
  6. AMOXICILLIN [Concomitant]
  7. ERBITUX [Suspect]
     Indication: TONGUE NEOPLASM MALIGNANT STAGE UNSPECIFIED
     Dosage: 9 ERBITUX INFUSIONS.
     Dates: start: 20100101
  8. METFORMIN [Concomitant]
  9. NEXIUM [Concomitant]

REACTIONS (4)
  - DYSPHAGIA [None]
  - TOOTH DISORDER [None]
  - DERMATITIS ACNEIFORM [None]
  - LOCALISED INFECTION [None]
